FAERS Safety Report 15439687 (Version 1)
Quarter: 2018Q3

REPORT INFORMATION
  Report Type: Report from Study
  Country: CA (occurrence: CA)
  Receive Date: 20180928
  Receipt Date: 20180928
  Transmission Date: 20181010
  Serious: Yes (Death, Other)
  Sender: FDA-Public Use
  Company Number: CA-BAYER-2018-178762

PATIENT
  Age: 82 Year
  Sex: Female

DRUGS (11)
  1. PAROXETINE. [Concomitant]
     Active Substance: PAROXETINE
  2. VITAMIN D [Concomitant]
     Active Substance: CHOLECALCIFEROL
  3. QUETIAPINE. [Concomitant]
     Active Substance: QUETIAPINE
  4. BETASERON [Suspect]
     Active Substance: INTERFERON BETA-1B
     Indication: MULTIPLE SCLEROSIS
     Dosage: 0.25 MG, UNK
     Dates: start: 20010703
  5. ACETAMINOPHEN. [Concomitant]
     Active Substance: ACETAMINOPHEN
  6. VITAMIN B12 [Concomitant]
     Active Substance: CYANOCOBALAMIN
  7. CALCIUM [Concomitant]
     Active Substance: CALCIUM
  8. DOCUSATE [Concomitant]
     Active Substance: DOCUSATE
  9. ADALAT [Concomitant]
     Active Substance: NIFEDIPINE
  10. MICARDIS [Concomitant]
     Active Substance: TELMISARTAN
  11. PANTOPRAZOLE [Concomitant]
     Active Substance: PANTOPRAZOLE

REACTIONS (2)
  - Death [Fatal]
  - Dementia [Unknown]

NARRATIVE: CASE EVENT DATE: 201808
